FAERS Safety Report 8446926-3 (Version None)
Quarter: 2012Q2

REPORT INFORMATION
  Report Type: 
  Country: None (occurrence: None)
  Receive Date: 20120613
  Receipt Date: 20120613
  Transmission Date: 20120825
  Serious: Yes (Hospitalization)
  Sender: FDA-Public Use
  Company Number: None

PATIENT
  Age: 78 Year
  Sex: Male
  Weight: 88.5 kg

DRUGS (2)
  1. SORAFENIB, 200 MG, TABLETS [Suspect]
     Indication: COLON CANCER METASTATIC
     Dosage: 200 MG, BID X 21 DAYS, PO
     Route: 048
     Dates: start: 20120606, end: 20120611
  2. XELODA [Suspect]
     Indication: COLON CANCER METASTATIC
     Dosage: 2000 MG, BID X 14 DAYS, PO
     Route: 048
     Dates: start: 20120606, end: 20120611

REACTIONS (2)
  - CONFUSIONAL STATE [None]
  - MUSCULAR WEAKNESS [None]
